FAERS Safety Report 12347020 (Version 1)
Quarter: 2016Q2

REPORT INFORMATION
  Report Type: Spontaneous
  Country: US (occurrence: None)
  Receive Date: 20160506
  Receipt Date: 20160506
  Transmission Date: 20160815
  Serious: Yes (Other)
  Sender: FDA-Public Use
  Company Number: None

PATIENT
  Age: 78 Year
  Sex: Male
  Weight: 72.58 kg

DRUGS (1)
  1. CARBIDOPA-LEVODOPA-ENTACAPONE [Suspect]
     Active Substance: CARBIDOPA\ENTACAPONE\LEVODOPA
     Dates: start: 201508, end: 20151106

REACTIONS (3)
  - Parkinson^s disease [None]
  - Fall [None]
  - Product substitution issue [None]

NARRATIVE: CASE EVENT DATE: 20150810
